FAERS Safety Report 24162612 (Version 2)
Quarter: 2024Q3

REPORT INFORMATION
  Report Type: Spontaneous
  Country: US (occurrence: US)
  Receive Date: 20240801
  Receipt Date: 20240829
  Transmission Date: 20241016
  Serious: No
  Sender: LEO PHARM
  Company Number: US-LEO Pharma-372413

PATIENT
  Age: 31 Year
  Sex: Male

DRUGS (1)
  1. ADBRY [Suspect]
     Active Substance: TRALOKINUMAB-LDRM
     Indication: Dermatitis atopic
     Dosage: INJECT SYRINGES UNDER THE SKIN ON DAY 1, THEN START MAINTENANCE DOSING AS DIRECTED ON DAY 15
     Route: 058
     Dates: start: 202407

REACTIONS (10)
  - Muscle spasms [Recovering/Resolving]
  - Skin exfoliation [Unknown]
  - Vision blurred [Recovering/Resolving]
  - Muscle fatigue [Recovering/Resolving]
  - Fatigue [Unknown]
  - Skin atrophy [Unknown]
  - Eye irritation [Recovering/Resolving]
  - Dry skin [Unknown]
  - Rash macular [Unknown]
  - Myalgia [Recovering/Resolving]
